FAERS Safety Report 4976189-2 (Version None)
Quarter: 2006Q2

REPORT INFORMATION
  Report Type: 
  Country: None (occurrence: None)
  Receive Date: 20060419
  Receipt Date: 20060407
  Transmission Date: 20061013
  Serious: Yes (Other)
  Sender: FDA-Public Use
  Company Number: FR-NOVOPROD-252363

PATIENT
  Age: 51 Year
  Sex: Male
  Weight: 75 kg

DRUGS (4)
  1. NOVOLOG MIX 70/30 [Suspect]
     Indication: DIABETES MELLITUS NON-INSULIN-DEPENDENT
     Dates: start: 20060101, end: 20060201
  2. METFORMIN [Concomitant]
     Dosage: 3000 MG, QD
     Route: 048
     Dates: start: 20000101
  3. ELISOR [Concomitant]
     Dosage: 40 MG, QD
     Route: 048
  4. DAONIL [Concomitant]
     Dosage: 3000 MG, QD
     Route: 048

REACTIONS (3)
  - BLOOD GLUCOSE INCREASED [None]
  - BLOOD UREA INCREASED [None]
  - GLYCOSYLATED HAEMOGLOBIN INCREASED [None]
